FAERS Safety Report 12632292 (Version 2)
Quarter: 2016Q3

REPORT INFORMATION
  Report Type: Spontaneous
  Country: US (occurrence: US)
  Receive Date: 20160808
  Receipt Date: 20160808
  Transmission Date: 20161109
  Serious: No
  Sender: FDA-Public Use
  Company Number: US-BEH-2016062326

PATIENT
  Sex: Female
  Weight: 94 kg

DRUGS (27)
  1. KETOPROFEN. [Concomitant]
     Active Substance: KETOPROFEN
  2. CYMBALTA [Concomitant]
     Active Substance: DULOXETINE HYDROCHLORIDE
  3. MUCINEX [Concomitant]
     Active Substance: GUAIFENESIN
  4. AMOXICILLIN. [Concomitant]
     Active Substance: AMOXICILLIN
  5. ATIVAN [Concomitant]
     Active Substance: LORAZEPAM
  6. TEARS [Concomitant]
  7. ZOCOR [Concomitant]
     Active Substance: SIMVASTATIN
  8. PRILOSEC [Concomitant]
     Active Substance: OMEPRAZOLE MAGNESIUM
  9. DOXYCYLINE [Concomitant]
     Active Substance: DOXYCYCLINE
  10. ALBUTEROL. [Concomitant]
     Active Substance: ALBUTEROL
  11. SINGULAIR [Concomitant]
     Active Substance: MONTELUKAST SODIUM
  12. METOPROLOL. [Concomitant]
     Active Substance: METOPROLOL
  13. CELEXA [Concomitant]
     Active Substance: CITALOPRAM HYDROBROMIDE
  14. SALINE NASAL SPRAY [Concomitant]
     Active Substance: SODIUM CHLORIDE
  15. LIDODERM [Concomitant]
     Active Substance: LIDOCAINE
  16. FLORICAL [Concomitant]
     Active Substance: DIETARY SUPPLEMENT
  17. QVAR [Concomitant]
     Active Substance: BECLOMETHASONE DIPROPIONATE
  18. ATROVENT [Concomitant]
     Active Substance: IPRATROPIUM BROMIDE
  19. TYLENOL [Concomitant]
     Active Substance: ACETAMINOPHEN
  20. DIPHENHYDRAMINE. [Concomitant]
     Active Substance: DIPHENHYDRAMINE
  21. EPIPEN [Concomitant]
     Active Substance: EPINEPHRINE
  22. CEFTIN [Concomitant]
     Active Substance: CEFUROXIME AXETIL
  23. SEREVENT DISKUS [Concomitant]
     Active Substance: SALMETEROL XINAFOATE
  24. ZANTAC [Concomitant]
     Active Substance: RANITIDINE HYDROCHLORIDE
  25. PERCOCET [Concomitant]
     Active Substance: ACETAMINOPHEN\OXYCODONE HYDROCHLORIDE
  26. HIZENTRA [Suspect]
     Active Substance: HUMAN IMMUNOGLOBULIN G
     Indication: HYPOGAMMAGLOBULINAEMIA
     Route: 058
     Dates: start: 20130425
  27. MULTIVITAMIN [Concomitant]
     Active Substance: VITAMINS

REACTIONS (1)
  - Sinusitis [Unknown]
